FAERS Safety Report 8316493-3 (Version None)
Quarter: 2012Q2

REPORT INFORMATION
  Report Type: 
  Country: None (occurrence: None)
  Receive Date: 20120427
  Receipt Date: 20120417
  Transmission Date: 20120825
  Serious: Yes (Other)
  Sender: FDA-Public Use
  Company Number: PHHY2012AT034730

PATIENT
  Age: 38 Year
  Sex: Female

DRUGS (2)
  1. PARLODEL [Suspect]
     Dosage: 2.5 MG, DAILY
     Dates: start: 20100101, end: 20100701
  2. GONADORELIN INJ [Suspect]
     Route: 058

REACTIONS (2)
  - MATERNAL EXPOSURE DURING PREGNANCY [None]
  - ABORTION [None]
